FAERS Safety Report 8814715 (Version 1)
Quarter: 2012Q4

REPORT INFORMATION
  Report Type: Report from Study
  Country: CA (occurrence: CA)
  Receive Date: 20120928
  Receipt Date: 20120928
  Transmission Date: 20130627
  Serious: Yes (Other)
  Sender: FDA-Public Use
  Company Number: CA-JNJFOC-20120908692

PATIENT
  Sex: Female

DRUGS (1)
  1. REMICADE [Suspect]
     Indication: RHEUMATOID ARTHRITIS
     Route: 042
     Dates: start: 201111, end: 201207

REACTIONS (4)
  - Pyoderma gangrenosum [Unknown]
  - Drug ineffective [Unknown]
  - Hidradenitis [Unknown]
  - Asthenia [Unknown]
